FAERS Safety Report 16633650 (Version 2)
Quarter: 2019Q3

REPORT INFORMATION
  Report Type: Spontaneous
  Country: CN (occurrence: CN)
  Receive Date: 20190725
  Receipt Date: 20190805
  Transmission Date: 20191004
  Serious: Yes (Death, Life-Threatening, Hospitalization, Other)
  Sender: FDA-Public Use
  Company Number: CN-TAKEDA-2019TUS044137

PATIENT
  Age: 57 Year
  Sex: Female
  Weight: 76 kg

DRUGS (2)
  1. VELCADE [Suspect]
     Active Substance: BORTEZOMIB
     Indication: PLASMA CELL MYELOMA
     Dosage: 2.5 MILLIGRAM
     Route: 058
     Dates: start: 20190628, end: 20190701
  2. DEXAMETHASONE. [Suspect]
     Active Substance: DEXAMETHASONE
     Indication: PLASMA CELL MYELOMA
     Dosage: 20 MILLIGRAM
     Route: 048
     Dates: start: 20190628, end: 20190702

REACTIONS (3)
  - Pancreatitis [Fatal]
  - Haemoptysis [Fatal]
  - Shock [Not Recovered/Not Resolved]

NARRATIVE: CASE EVENT DATE: 20190704
